FAERS Safety Report 22224991 (Version 1)
Quarter: 2023Q2

REPORT INFORMATION
  Report Type: Spontaneous
  Country: FR (occurrence: FR)
  Receive Date: 20230418
  Receipt Date: 20230418
  Transmission Date: 20230721
  Serious: Yes (Life-Threatening, Hospitalization, Other)
  Sender: FDA-Public Use
  Company Number: FR-ROCHE-3325481

PATIENT
  Age: 46 Year
  Sex: Female
  Weight: 73 kg

DRUGS (21)
  1. PREDNISONE [Suspect]
     Active Substance: PREDNISONE
     Indication: Cryoglobulinaemia
     Dosage: FOR 1WEEK,GRADUAL DECREASE PLANNED UNTIL JUN-2023
     Route: 048
     Dates: start: 20221224
  2. PREDNISONE [Suspect]
     Active Substance: PREDNISONE
     Dosage: UNK UNK, QW
     Route: 048
     Dates: start: 20221224
  3. VALGANCICLOVIR HYDROCHLORIDE [Suspect]
     Active Substance: VALGANCICLOVIR HYDROCHLORIDE
     Indication: Pneumonia cytomegaloviral
     Dosage: UNK UNK, QW
     Route: 048
     Dates: start: 20230206, end: 20230217
  4. METHYLPREDNISOLONE [Suspect]
     Active Substance: METHYLPREDNISOLONE
     Indication: Product used for unknown indication
     Dosage: 500 MILLIGRAM
     Route: 065
     Dates: start: 20221203, end: 20221205
  5. RITUXIMAB [Suspect]
     Active Substance: RITUXIMAB
     Indication: Cryoglobulinaemia
     Dosage: UNK
     Route: 042
     Dates: start: 20221219, end: 20221219
  6. RITUXIMAB [Suspect]
     Active Substance: RITUXIMAB
     Dosage: UNK
     Route: 042
     Dates: start: 20221226, end: 20221226
  7. RITUXIMAB [Suspect]
     Active Substance: RITUXIMAB
     Dosage: UNK
     Route: 042
     Dates: start: 20230103, end: 20230103
  8. RITUXIMAB [Suspect]
     Active Substance: RITUXIMAB
     Dosage: UNK
     Route: 042
     Dates: start: 20221213, end: 20221213
  9. BACTRIM [Suspect]
     Active Substance: SULFAMETHOXAZOLE\TRIMETHOPRIM
     Indication: Antibiotic prophylaxis
     Dosage: UNK
     Route: 048
     Dates: start: 20230206, end: 20230217
  10. RILMENIDINE [Concomitant]
     Active Substance: RILMENIDINE
     Dosage: UNK
     Route: 065
  11. PANTOPRAZOLE [Concomitant]
     Active Substance: PANTOPRAZOLE
     Dosage: UNK
     Route: 065
  12. FUROSEMIDE [Concomitant]
     Active Substance: FUROSEMIDE
     Dosage: UNK
     Route: 065
  13. ATENOLOL [Concomitant]
     Active Substance: ATENOLOL
     Dosage: UNK
     Route: 065
  14. GABAPENTIN [Concomitant]
     Active Substance: GABAPENTIN
     Dosage: UNK
     Route: 065
  15. CLONIDINE [Concomitant]
     Active Substance: CLONIDINE
     Dosage: UNK
     Route: 065
  16. ARANESP [Concomitant]
     Active Substance: DARBEPOETIN ALFA
     Dosage: UNK
     Route: 065
  17. URAPIDIL [Concomitant]
     Active Substance: URAPIDIL
     Dosage: UNK
     Route: 065
  18. FOLIC ACID [Concomitant]
     Active Substance: FOLIC ACID
     Dosage: UNK
     Route: 065
  19. AMLODIPINE BESYLATE [Concomitant]
     Active Substance: AMLODIPINE BESYLATE
     Dosage: UNK
     Route: 065
  20. CHOLECALCIFEROL [Concomitant]
     Active Substance: CHOLECALCIFEROL
     Dosage: UNK
     Route: 065
  21. REPAGLINIDE [Concomitant]
     Active Substance: REPAGLINIDE
     Dosage: UNK
     Route: 065

REACTIONS (8)
  - Febrile bone marrow aplasia [Recovering/Resolving]
  - Multiple organ dysfunction syndrome [Not Recovered/Not Resolved]
  - Septic shock [Recovering/Resolving]
  - Klebsiella infection [Unknown]
  - Staphylococcal infection [Unknown]
  - Pneumonia respiratory syncytial viral [Recovered/Resolved]
  - Candida infection [Unknown]
  - Product use in unapproved indication [Unknown]

NARRATIVE: CASE EVENT DATE: 20221229
